FAERS Safety Report 14869120 (Version 1)
Quarter: 2018Q2

REPORT INFORMATION
  Report Type: Spontaneous
  Country: US (occurrence: US)
  Receive Date: 20180509
  Receipt Date: 20180509
  Transmission Date: 20180711
  Serious: No
  Sender: FDA-Public Use
  Company Number: US-GLENMARK PHARMACEUTICALS-2018GMK033789

PATIENT

DRUGS (2)
  1. NAPROXEN TABLETS USP [Suspect]
     Active Substance: NAPROXEN
     Indication: HEADACHE
     Dosage: 6 DF, QD
     Route: 048
     Dates: start: 20180312
  2. NAPROXEN TABLETS USP [Suspect]
     Active Substance: NAPROXEN
     Dosage: 7 DF, QD
     Route: 048
     Dates: start: 20180313

REACTIONS (3)
  - Intentional overdose [Unknown]
  - Tinnitus [Unknown]
  - Drug ineffective [Unknown]

NARRATIVE: CASE EVENT DATE: 20180312
